FAERS Safety Report 7506848-9 (Version None)
Quarter: 2011Q2

REPORT INFORMATION
  Report Type: 
  Country: None (occurrence: None)
  Receive Date: 20110526
  Receipt Date: 20110520
  Transmission Date: 20111010
  Serious: Yes (Hospitalization)
  Sender: FDA-Public Use
  Company Number: B0719419A

PATIENT
  Sex: Male

DRUGS (1)
  1. VALTREX [Suspect]
     Indication: EAR DISCOMFORT
     Dosage: 3000MG PER DAY
     Route: 048
     Dates: start: 20110506, end: 20110507

REACTIONS (4)
  - NERVOUS SYSTEM DISORDER [None]
  - DISORIENTATION [None]
  - GAIT DISTURBANCE [None]
  - DYSARTHRIA [None]
